FAERS Safety Report 4488630-2 (Version None)
Quarter: 2004Q4

REPORT INFORMATION
  Report Type: 
  Country: None (occurrence: None)
  Receive Date: 20041025
  Receipt Date: 20041008
  Transmission Date: 20050328
  Serious: Yes (Disabling)
  Sender: FDA-Public Use
  Company Number: 2004GB02064

PATIENT
  Age: 69 Year
  Sex: Female

DRUGS (6)
  1. SEROQUEL [Suspect]
     Indication: PSYCHOTIC DISORDER
     Dosage: 50 MG BID PO
     Route: 048
     Dates: start: 20040605, end: 20040713
  2. SEROQUEL [Suspect]
     Indication: PSYCHOTIC DISORDER
     Dosage: 25 MG BID PO
     Route: 048
     Dates: start: 20040714, end: 20040730
  3. THYROXINE [Concomitant]
  4. CALCIUM SUPPLEMENTS [Concomitant]
  5. SULFASALAZINE [Concomitant]
  6. LANZOPRAZOLE [Concomitant]

REACTIONS (5)
  - DYSKINESIA [None]
  - EMOTIONAL DISTRESS [None]
  - MARKEDLY REDUCED DIETARY INTAKE [None]
  - PARANOIA [None]
  - TREMOR [None]
